FAERS Safety Report 7038950-2 (Version None)
Quarter: 2010Q4

REPORT INFORMATION
  Report Type: 
  Country: None (occurrence: None)
  Receive Date: 20101012
  Receipt Date: 20100128
  Transmission Date: 20110411
  Serious: No
  Sender: FDA-Public Use
  Company Number: US-BAYER-200943764NA

PATIENT
  Sex: Male

DRUGS (1)
  1. MIRENA [Suspect]
     Indication: CONTRACEPTION
     Dosage: NOT APPLICABLE- PARTNER

REACTIONS (1)
  - PENILE PAIN [None]
